FAERS Safety Report 4422984-8 (Version None)
Quarter: 2004Q3

REPORT INFORMATION
  Report Type: 
  Country: None (occurrence: None)
  Receive Date: 20040805
  Receipt Date: 20040730
  Transmission Date: 20050211
  Serious: Yes (Death)
  Sender: FDA-Public Use
  Company Number: HQWYE733603AUG04

PATIENT
  Age: 44 Year
  Sex: Female

DRUGS (1)
  1. PREMARIN [Suspect]
     Indication: OESTROGEN REPLACEMENT THERAPY
     Dates: start: 19800101, end: 20030529

REACTIONS (4)
  - HAEMORRHAGIC STROKE [None]
  - OVARIAN CANCER [None]
  - RENAL DISORDER [None]
  - THROMBOSIS [None]
